FAERS Safety Report 20001534 (Version 1)
Quarter: 2021Q4

REPORT INFORMATION
  Report Type: Spontaneous
  Country: US (occurrence: US)
  Receive Date: 20211027
  Receipt Date: 20211027
  Transmission Date: 20220303
  Serious: Yes (Death)
  Sender: FDA-Public Use
  Company Number: None

PATIENT
  Age: 79 Year
  Sex: Female
  Weight: 102 kg

DRUGS (1)
  1. BARICITINIB [Suspect]
     Active Substance: BARICITINIB
     Route: 048
     Dates: start: 20210909

REACTIONS (8)
  - Sedation [None]
  - Hypotension [None]
  - Respiratory depression [None]
  - Bradycardia [None]
  - Acute respiratory failure [None]
  - Electrolyte imbalance [None]
  - Hypertension [None]
  - Chest X-ray abnormal [None]

NARRATIVE: CASE EVENT DATE: 20210924
